FAERS Safety Report 21017167 (Version 1)
Quarter: 2022Q2

REPORT INFORMATION
  Report Type: Spontaneous
  Country: US (occurrence: US)
  Receive Date: 20220628
  Receipt Date: 20220628
  Transmission Date: 20220721
  Serious: No
  Sender: FDA-Public Use
  Company Number: US-PFIZER INC-PV202200009929

PATIENT
  Age: 39 Year
  Sex: Female

DRUGS (1)
  1. IBRANCE [Suspect]
     Active Substance: PALBOCICLIB
     Dosage: UNK

REACTIONS (7)
  - Product dose omission issue [Unknown]
  - Nausea [Recovered/Resolved]
  - White blood cell count decreased [Unknown]
  - Fatigue [Recovered/Resolved]
  - Neutrophil count decreased [Unknown]
  - Sleep disorder [Recovered/Resolved]
  - Memory impairment [Recovered/Resolved]
